FAERS Safety Report 11190113 (Version 2)
Quarter: 2020Q2

REPORT INFORMATION
  Report Type: Spontaneous
  Country: US (occurrence: US)
  Receive Date: 20150615
  Receipt Date: 20200527
  Transmission Date: 20200713
  Serious: Yes (Death, Hospitalization, Other)
  Sender: FDA-Public Use
  Company Number: US-MERCK-1506USA006996

PATIENT
  Sex: Female

DRUGS (1)
  1. JANUVIA [Suspect]
     Active Substance: SITAGLIPTIN PHOSPHATE
     Dosage: ONCE DAILY
     Route: 048
     Dates: start: 201107, end: 201112

REACTIONS (19)
  - Cardiac failure congestive [Unknown]
  - Malignant pleural effusion [Unknown]
  - Acute respiratory failure [Unknown]
  - Cardio-respiratory arrest [Fatal]
  - Pancreatic mass [Unknown]
  - Decreased appetite [Unknown]
  - Jaundice cholestatic [Unknown]
  - Dyspnoea [Unknown]
  - Obstructive airways disorder [Unknown]
  - Arteriosclerosis coronary artery [Unknown]
  - Insomnia [Unknown]
  - Sinus tachycardia [Unknown]
  - Anxiety [Unknown]
  - Pancreatic carcinoma [Fatal]
  - Pulmonary hypertension [Unknown]
  - Pneumonia [Unknown]
  - Pancreaticoduodenectomy [Unknown]
  - Hypercalcaemia [Unknown]
  - Urinary tract infection [Unknown]

NARRATIVE: CASE EVENT DATE: 20111118
